FAERS Safety Report 5740544-3 (Version None)
Quarter: 2008Q2

REPORT INFORMATION
  Report Type: 
  Country: None (occurrence: None)
  Receive Date: 20080516
  Receipt Date: 20080421
  Transmission Date: 20081010
  Serious: No
  Sender: FDA-Public Use
  Company Number: US-JNJFOC-20080405590

PATIENT
  Sex: Female
  Weight: 68.04 kg

DRUGS (8)
  1. INVEGA [Suspect]
     Indication: BIPOLAR DISORDER
     Route: 048
  2. NORTRIPTYLINE HCL [Concomitant]
     Indication: BIPOLAR DISORDER
     Route: 048
  3. CITALOPRAM HYDROBROMIDE [Concomitant]
     Indication: BIPOLAR DISORDER
     Route: 048
  4. CLONAZEPAM [Concomitant]
     Indication: BIPOLAR DISORDER
     Route: 048
  5. LEVOTHYROXINE SODIUM [Concomitant]
     Route: 048
  6. LEVOTHYROXINE SODIUM [Concomitant]
     Indication: THYROIDECTOMY
     Route: 048
  7. FOSAMAX [Concomitant]
     Indication: OSTEOPOROSIS
     Route: 048
  8. PREMARIN [Concomitant]

REACTIONS (3)
  - MEDICATION ERROR [None]
  - MUSCULAR WEAKNESS [None]
  - TREMOR [None]
